FAERS Safety Report 11660512 (Version 1)
Quarter: 2015Q4

REPORT INFORMATION
  Report Type: Spontaneous
  Country: DE (occurrence: DE)
  Receive Date: 20151026
  Receipt Date: 20151026
  Transmission Date: 20160304
  Serious: Yes (Hospitalization)
  Sender: FDA-Public Use
  Company Number: DE-ASTRAZENECA-2015SF01139

PATIENT
  Age: 29 Year
  Sex: Male

DRUGS (2)
  1. VANDETANIB. [Suspect]
     Active Substance: VANDETANIB
     Indication: MULTIPLE ENDOCRINE NEOPLASIA TYPE 2A
     Route: 048
  2. VANDETANIB. [Suspect]
     Active Substance: VANDETANIB
     Indication: MEDULLARY THYROID CANCER
     Route: 048

REACTIONS (4)
  - Myocarditis [Recovering/Resolving]
  - Cough [Unknown]
  - Hypertension [Unknown]
  - Rales [Unknown]
